FAERS Safety Report 23349983 (Version 1)
Quarter: 2023Q4

REPORT INFORMATION
  Report Type: Spontaneous
  Country: US (occurrence: US)
  Receive Date: 20231229
  Receipt Date: 20231229
  Transmission Date: 20240110
  Serious: No
  Sender: FDA-Public Use
  Company Number: US-ASTELLAS-2023US025047

PATIENT
  Sex: Male

DRUGS (1)
  1. PADCEV [Suspect]
     Active Substance: ENFORTUMAB VEDOTIN-EJFV
     Indication: Bladder cancer
     Dosage: 81 MG, CYCLIC (ON DAY 1, 8, 15 EVERY 28 DAYS)
     Route: 065
     Dates: start: 20230330, end: 20230803

REACTIONS (1)
  - Drug intolerance [Unknown]
